FAERS Safety Report 20929181 (Version 7)
Quarter: 2024Q1

REPORT INFORMATION
  Report Type: Spontaneous
  Country: CA (occurrence: CA)
  Receive Date: 20220608
  Receipt Date: 20240207
  Transmission Date: 20240410
  Serious: Yes (Other)
  Sender: FDA-Public Use
  Company Number: CA-CELLTRION INC.-2022CA008620

PATIENT

DRUGS (12)
  1. INFLECTRA [Suspect]
     Active Substance: INFLIXIMAB-DYYB
     Indication: Colitis ulcerative
     Dosage: 300 MG, AT WEEK 0, 2 ND 6 THEN Q 8 WEEKS
     Route: 042
     Dates: start: 20220414, end: 20220414
  2. INFLECTRA [Suspect]
     Active Substance: INFLIXIMAB-DYYB
     Dosage: 300 MG, AT WEEK 0, 2 ND 6 THEN Q 8 WEEKS
     Route: 042
     Dates: start: 20220414, end: 20220527
  3. INFLECTRA [Suspect]
     Active Substance: INFLIXIMAB-DYYB
     Dosage: 300 MG, AT WEEK 0, 2 ND 6 THEN Q 8 WEEKS
     Route: 042
     Dates: start: 20220429
  4. INFLECTRA [Suspect]
     Active Substance: INFLIXIMAB-DYYB
     Dosage: 300 MG, AT WEEK 0, 2 ND 6 THEN Q 8 WEEKS
     Route: 042
     Dates: start: 20220527
  5. INFLECTRA [Suspect]
     Active Substance: INFLIXIMAB-DYYB
     Dosage: 800 MG, RESCUE DOSE
     Route: 042
     Dates: start: 20220719, end: 20220719
  6. INFLECTRA [Suspect]
     Active Substance: INFLIXIMAB-DYYB
     Dosage: 800 MG, RESCUE DOSE
     Route: 042
     Dates: start: 20220719, end: 20220719
  7. INFLECTRA [Suspect]
     Active Substance: INFLIXIMAB-DYYB
     Dosage: 800 MG,RESCUE DOSE
     Route: 042
     Dates: start: 20220719, end: 20220719
  8. INFLECTRA [Suspect]
     Active Substance: INFLIXIMAB-DYYB
     Dosage: 800 MG, RESCUE DOSE
     Route: 042
     Dates: start: 20220913
  9. INFLECTRA [Suspect]
     Active Substance: INFLIXIMAB-DYYB
     Dosage: 5 MG/KG, EVERY 4 WEEK
     Route: 042
     Dates: start: 20220816
  10. CITALOPRAM [Concomitant]
     Active Substance: CITALOPRAM HYDROBROMIDE
     Dosage: UNK
  11. PREDNISONE [Concomitant]
     Active Substance: PREDNISONE
     Dosage: UNK
  12. VANCOMYCIN [Concomitant]
     Active Substance: VANCOMYCIN
     Dosage: UNK

REACTIONS (8)
  - Weight increased [Unknown]
  - Weight decreased [Unknown]
  - Condition aggravated [Recovered/Resolved]
  - Blood pressure diastolic decreased [Recovered/Resolved]
  - Off label use [Unknown]
  - Off label use [Unknown]
  - Intentional product use issue [Unknown]
  - Off label use [Unknown]

NARRATIVE: CASE EVENT DATE: 20220101
